FAERS Safety Report 10194266 (Version 1)
Quarter: 2014Q2

REPORT INFORMATION
  Report Type: Spontaneous
  Country: US (occurrence: US)
  Receive Date: 20140526
  Receipt Date: 20140526
  Transmission Date: 20141212
  Serious: No
  Sender: FDA-Public Use
  Company Number: US-ASTRAZENECA-2014SE33406

PATIENT
  Age: 12 Year
  Sex: Female

DRUGS (8)
  1. SEROQUEL [Suspect]
     Indication: PSYCHOTIC DISORDER
     Route: 048
     Dates: start: 2014
  2. SEROQUEL [Suspect]
     Indication: PSYCHOTIC DISORDER
     Route: 048
     Dates: start: 201402
  3. SEROQUEL [Suspect]
     Indication: PSYCHOTIC DISORDER
     Route: 048
     Dates: start: 2014
  4. SEROQUEL [Suspect]
     Indication: PSYCHOTIC DISORDER
     Route: 048
     Dates: start: 2014
  5. SEROQUEL [Suspect]
     Indication: PSYCHOTIC DISORDER
     Route: 048
     Dates: start: 2014
  6. ABILIFY [Concomitant]
     Dosage: UNKNOWN UNK
  7. ADDERAL [Concomitant]
     Dosage: UNKNOWN UNK
  8. METFORMIN [Concomitant]
     Dosage: UNKNOWN UNK

REACTIONS (4)
  - Overweight [Unknown]
  - Increased appetite [Unknown]
  - Somnolence [Unknown]
  - Off label use [Unknown]
